FAERS Safety Report 9610636 (Version 1)
Quarter: 2013Q4

REPORT INFORMATION
  Report Type: Spontaneous
  Country: RS (occurrence: RS)
  Receive Date: 20131009
  Receipt Date: 20131009
  Transmission Date: 20140711
  Serious: Yes (Hospitalization)
  Sender: FDA-Public Use
  Company Number: PHHY2013RS111334

PATIENT
  Age: 80 Year
  Sex: Female

DRUGS (3)
  1. ACETYLSALICYLIC ACID [Suspect]
     Indication: ANTICOAGULANT THERAPY
     Dosage: 100 MG, UNK
  2. CLOPIDOGREL [Suspect]
     Indication: ANTICOAGULANT THERAPY
     Dosage: 75 MG, UNK
  3. CLEXANE [Suspect]
     Indication: ANTICOAGULANT THERAPY
     Dosage: 60 MG IN 0.6 ML, BID
     Route: 058

REACTIONS (6)
  - Abdominal wall haematoma [Recovered/Resolved]
  - Abdominal mass [Recovered/Resolved]
  - Haemoglobin decreased [Recovered/Resolved]
  - Haemorrhage [Recovered/Resolved]
  - Abdominal pain [Recovered/Resolved]
  - Arterial haemorrhage [Recovered/Resolved]
